FAERS Safety Report 5741336-1 (Version None)
Quarter: 2008Q2

REPORT INFORMATION
  Report Type: 
  Country: None (occurrence: None)
  Receive Date: 20080514
  Receipt Date: 20080430
  Transmission Date: 20081010
  Serious: Yes (Hospitalization)
  Sender: FDA-Public Use
  Company Number: 8032463

PATIENT
  Sex: Male

DRUGS (2)
  1. KEPPRA [Suspect]
     Dosage: 2000 MG /D TRP
     Route: 064
     Dates: end: 20071127
  2. KEPPRA [Suspect]
     Dosage: 2000 MG /D TRM
     Route: 063
     Dates: start: 20071127

REACTIONS (4)
  - DRUG EXPOSURE DURING PREGNANCY [None]
  - DRUG EXPOSURE VIA BREAST MILK [None]
  - HAEMATOCRIT INCREASED [None]
  - SEPSIS NEONATAL [None]
